FAERS Safety Report 9934887 (Version 2)
Quarter: 2014Q3

REPORT INFORMATION
  Report Type: Spontaneous
  Country: GB (occurrence: GB)
  Receive Date: 20140228
  Receipt Date: 20140821
  Transmission Date: 20150326
  Serious: Yes (Other)
  Sender: FDA-Public Use
  Company Number: PHFR2014GB001847

PATIENT
  Age: 48 Year
  Sex: Female

DRUGS (9)
  1. FERROUS SULFATE [Concomitant]
     Active Substance: FERROUS SULFATE\FERROUS SULFATE, DRIED
     Dosage: 200 MG, BID
  2. LACTULOSE. [Concomitant]
     Active Substance: LACTULOSE
     Dosage: 10 ML, UNK
  3. CLOZARIL [Suspect]
     Active Substance: CLOZAPINE
     Dosage: UNK
     Route: 048
     Dates: start: 20140703
  4. CLOZARIL [Suspect]
     Active Substance: CLOZAPINE
     Indication: SCHIZOPHRENIA
     Dosage: UNK
     Route: 048
     Dates: start: 20010701
  5. SIMVASTATIN. [Concomitant]
     Active Substance: SIMVASTATIN
     Dosage: 20 MG, UNK
  6. CLOZARIL [Suspect]
     Active Substance: CLOZAPINE
     Dosage: 250 UKN, DAILY
     Route: 048
     Dates: end: 20140227
  7. LOSARTAN [Concomitant]
     Active Substance: LOSARTAN
     Dosage: 100 MG, UNK
  8. RISPERIDONE. [Concomitant]
     Active Substance: RISPERIDONE
     Dosage: 7 MG, BID
  9. BISOPROLOL [Concomitant]
     Active Substance: BISOPROLOL
     Dosage: 10 MG, UNK

REACTIONS (4)
  - Left ventricular failure [Recovered/Resolved]
  - Bundle branch block left [Unknown]
  - Ejection fraction decreased [Unknown]
  - Mental impairment [Unknown]

NARRATIVE: CASE EVENT DATE: 20131211
